FAERS Safety Report 11702461 (Version 1)
Quarter: 2015Q4

REPORT INFORMATION
  Report Type: Spontaneous
  Country: CA (occurrence: CA)
  Receive Date: 20151105
  Receipt Date: 20151105
  Transmission Date: 20160304
  Serious: Yes (Death)
  Sender: FDA-Public Use
  Company Number: CA-TEVA-605723ACC

PATIENT
  Sex: Female

DRUGS (6)
  1. THYROXINE [Concomitant]
     Active Substance: LEVOTHYROXINE
  2. CLONAZEPAM. [Concomitant]
     Active Substance: CLONAZEPAM
  3. CITALOPRAM [Suspect]
     Active Substance: CITALOPRAM HYDROBROMIDE
     Indication: PRODUCT USED FOR UNKNOWN INDICATION
     Route: 065
  4. VPA [Concomitant]
  5. AMITRIPTYLINE [Concomitant]
     Active Substance: AMITRIPTYLINE
  6. CELEXA [Concomitant]
     Active Substance: CITALOPRAM HYDROBROMIDE

REACTIONS (5)
  - Pain [Fatal]
  - Syncope [Fatal]
  - Alcohol poisoning [Fatal]
  - Toxicity to various agents [Fatal]
  - Fall [Fatal]
